FAERS Safety Report 8954278 (Version 3)
Quarter: 2013Q1

REPORT INFORMATION
  Report Type: Spontaneous
  Country: US (occurrence: US)
  Receive Date: 20121207
  Receipt Date: 20130118
  Transmission Date: 20140127
  Serious: Yes (Hospitalization, Other)
  Sender: FDA-Public Use
  Company Number: US-EISAI INC-E7389-03320-SPO-US

PATIENT
  Sex: 0

DRUGS (2)
  1. HALAVEN [Suspect]
     Dosage: UNKNOWN
     Route: 041
  2. VANCOMYCIN [Suspect]
     Indication: FEBRILE NEUTROPENIA
     Dosage: UNKNOWN
     Route: 065

REACTIONS (2)
  - Stevens-Johnson syndrome [Unknown]
  - Febrile neutropenia [Unknown]
